FAERS Safety Report 6756812-2 (Version None)
Quarter: 2010Q2

REPORT INFORMATION
  Report Type: 
  Country: None (occurrence: None)
  Receive Date: 20100604
  Receipt Date: 20100526
  Transmission Date: 20101027
  Serious: Yes (Hospitalization)
  Sender: FDA-Public Use
  Company Number: US-ELI_LILLY_AND_COMPANY-US201004004290

PATIENT
  Sex: Male

DRUGS (4)
  1. ALIMTA [Suspect]
     Indication: NON-SMALL CELL LUNG CANCER METASTATIC
     Dosage: 800 MG, EVERY 21 DAYS
     Dates: start: 20100122
  2. CARBOPLATIN [Concomitant]
     Indication: NON-SMALL CELL LUNG CANCER METASTATIC
     Dosage: UNK, EVERY 21 DAYS
     Dates: start: 20100122
  3. FOLIC ACID [Concomitant]
  4. VITAMIN B-12 [Concomitant]

REACTIONS (1)
  - PAIN [None]
